FAERS Safety Report 7601283-7 (Version None)
Quarter: 2011Q3

REPORT INFORMATION
  Report Type: 
  Country: None (occurrence: None)
  Receive Date: 20110711
  Receipt Date: 20080828
  Transmission Date: 20111222
  Serious: Yes (Death, Hospitalization, Other)
  Sender: FDA-Public Use
  Company Number: US-BAYER-201031091NA

PATIENT
  Age: 59 Year
  Sex: Male
  Weight: 79 kg

DRUGS (27)
  1. TUMS [CALCIUM CARBONATE] [Concomitant]
     Dosage: 1000 MG, LONG TERM
     Route: 048
  2. HEPARIN [Concomitant]
     Dosage: 24000 U, UNK
     Route: 042
     Dates: start: 20050103, end: 20050103
  3. CALCIUM CHLORIDE [Concomitant]
     Dosage: 3 AMPULES
     Route: 042
     Dates: start: 20050103, end: 20050103
  4. FRESH FROZEN PLASMA [Concomitant]
     Dosage: 2 U, UNK
     Route: 042
     Dates: start: 20050103, end: 20050103
  5. ALBUMIN (HUMAN) [Concomitant]
     Dosage: 12.5 G, UNK
     Route: 042
     Dates: start: 20050103, end: 20050103
  6. MANNITOL [Concomitant]
     Dosage: 12.5 G, UNK
     Route: 042
     Dates: start: 20050103, end: 20050103
  7. MAGNESIUM SULFATE [Concomitant]
     Dosage: 2 G, UNK
     Route: 042
     Dates: start: 20050103, end: 20050103
  8. TRASYLOL [Suspect]
     Dosage: 200 ML LOADING DOSE
     Route: 042
     Dates: start: 20050103, end: 20050103
  9. DARBEPOETIN ALFA [Concomitant]
     Dosage: 50 UNK (LONG TERM)
     Route: 058
  10. ZOCOR [Concomitant]
     Dosage: 20 MG, LONG TERM
     Route: 048
  11. ROCURONIUM BROMIDE [Concomitant]
     Dosage: UNK
     Route: 042
     Dates: start: 20050103
  12. PROTAMINE SULFATE [Concomitant]
     Dosage: UNK
     Route: 042
     Dates: start: 20050103
  13. SODIUM BICARBONATE [Concomitant]
     Dosage: 5/100 MEQ
     Route: 042
     Dates: start: 20050103, end: 20050103
  14. MINOXIDIL [Concomitant]
     Dosage: 10 MG, LONG TERM
     Route: 048
  15. LANTUS [Concomitant]
  16. HEPARIN [Concomitant]
     Dosage: 10,000/24,000 UNITS
     Route: 042
     Dates: start: 20050103, end: 20050103
  17. NORVASC [Concomitant]
     Dosage: 10 MG, LONG TERM
     Route: 048
  18. ZAROXOLYN [Concomitant]
     Dosage: 5 MG, LONG-TERM
     Route: 048
  19. SUFENTANIL CITRATE [Concomitant]
     Dosage: UNK
     Dates: start: 20050103
  20. TRASYLOL [Suspect]
     Indication: PRODUCT USED FOR UNKNOWN INDICATION
     Dosage: 2000000 KIU/ML
     Route: 042
     Dates: start: 20050103, end: 20050103
  21. ACETYLSALICYLIC ACID SRT [Concomitant]
     Dosage: 325 MG, (LONG TERM)
     Route: 048
  22. ETOMIDATE [Concomitant]
     Dosage: UNK
     Route: 042
     Dates: start: 20050103
  23. ZINACEF [Concomitant]
     Dosage: 1.5 G, UNK
     Route: 042
     Dates: start: 20050103, end: 20050103
  24. LOPRESSOR [Concomitant]
     Dosage: 75 MG, LONG TERM
     Route: 048
  25. LASIX [Concomitant]
     Dosage: 80 MG, LONG TERM
     Route: 048
  26. RED BLOOD CELLS [Concomitant]
     Dosage: 2 U, UNK
     Route: 042
     Dates: start: 20050103, end: 20050103
  27. PLATELETS [Concomitant]
     Dosage: 6 PACKS
     Route: 042
     Dates: start: 20050103, end: 20050103

REACTIONS (10)
  - RENAL INJURY [None]
  - EMOTIONAL DISTRESS [None]
  - STRESS [None]
  - PAIN [None]
  - ANXIETY [None]
  - UNEVALUABLE EVENT [None]
  - MULTI-ORGAN FAILURE [None]
  - RENAL FAILURE [None]
  - RENAL IMPAIRMENT [None]
  - FEAR [None]
